FAERS Safety Report 6913558-5 (Version None)
Quarter: 2010Q3

REPORT INFORMATION
  Report Type: 
  Country: None (occurrence: None)
  Receive Date: 20100719
  Receipt Date: 20090401
  Transmission Date: 20110219
  Serious: No
  Sender: FDA-Public Use
  Company Number: 2009-01077

PATIENT
  Sex: Female
  Weight: 49.8957 kg

DRUGS (1)
  1. ZICAM COLD REMEDY NASAL GEL [Suspect]
     Dosage: QD X 1 DOSE
     Dates: start: 20090319

REACTIONS (2)
  - AGEUSIA [None]
  - ANOSMIA [None]
